FAERS Safety Report 8520246-0 (Version None)
Quarter: 2012Q3

REPORT INFORMATION
  Report Type: 
  Country: None (occurrence: None)
  Receive Date: 20120719
  Receipt Date: 20120712
  Transmission Date: 20120928
  Serious: Yes (Other)
  Sender: FDA-Public Use
  Company Number: US-AMGEN-USASP2012038663

PATIENT
  Age: 65 Year
  Sex: Female

DRUGS (22)
  1. OXYCONTIN [Concomitant]
     Dosage: 60 MG, TID
     Route: 048
     Dates: start: 20120226
  2. TOFRANIL [Concomitant]
     Indication: HEADACHE
     Dosage: 50 MG, QHS
     Route: 048
     Dates: start: 20110527
  3. PREDNISONE [Concomitant]
     Dosage: UNK
     Dates: start: 20120301
  4. FLEXERIL [Concomitant]
     Dosage: 10 MG, Q8H
     Route: 048
     Dates: start: 20110715
  5. VIACTIV                            /00751501/ [Concomitant]
     Dosage: UNK UNK, BID
     Dates: start: 20110714
  6. KLONOPIN [Concomitant]
     Dosage: 2 MG, QHS
     Route: 048
     Dates: start: 20101111
  7. AMBIEN [Concomitant]
     Dosage: 10 MG, PRN
     Route: 048
     Dates: start: 20101022
  8. PRAMIPEXOLE DIHYCHLORIDE [Concomitant]
     Dosage: 0.5 MG, QD
     Dates: start: 20120706
  9. NYSTATIN [Concomitant]
     Dosage: 100000 IU, PRN
     Route: 061
     Dates: start: 20120130
  10. ZOFRAN [Concomitant]
     Dosage: 4 MG, PRN
     Route: 048
     Dates: start: 20110130
  11. POTASSIUM CHLORIDE [Concomitant]
     Dosage: 20 MEQ, QD
     Route: 048
     Dates: start: 20101111
  12. VITAMIN D [Concomitant]
     Dosage: 3000 IU, TID
     Dates: start: 20110714
  13. VOLTAREN [Concomitant]
     Indication: OSTEOARTHRITIS
     Dosage: 1 %, QD
     Route: 061
     Dates: start: 20110615
  14. TRAMADOL HYDROCHLORIDE [Concomitant]
     Indication: HEADACHE
     Dosage: 50 MG, QD
     Route: 048
     Dates: start: 20110507
  15. PEPCID [Concomitant]
     Dosage: 20 MG, BID
     Route: 048
     Dates: start: 20110406
  16. OMEPRAZOLE [Concomitant]
     Dosage: 20 MG, QD
     Route: 048
     Dates: start: 20120706
  17. MECLIZINE [Concomitant]
     Indication: DIZZINESS
     Dosage: 25 MG, TID
     Route: 048
     Dates: start: 20110527
  18. AMLODIPINE [Concomitant]
     Dosage: 5 MG, BID
     Route: 048
     Dates: start: 20110202
  19. PROLIA [Suspect]
     Indication: OSTEOPOROSIS POSTMENOPAUSAL
     Dosage: 60 MG, Q6MO
     Route: 058
     Dates: start: 20110901
  20. CLOTRIMAZOLE AF [Concomitant]
     Dosage: 1 %, BID
     Route: 061
     Dates: start: 20111021
  21. IMITREX [Concomitant]
     Indication: MIGRAINE
     Dosage: UNK UNK, PRN
     Route: 058
     Dates: start: 20011024
  22. ASPIRIN [Concomitant]
     Dosage: 81 MG, QD
     Route: 048
     Dates: start: 20110202

REACTIONS (3)
  - TOOTH LOSS [None]
  - TOOTH EXTRACTION [None]
  - EXPOSED BONE IN JAW [None]
